FAERS Safety Report 9581369 (Version 2)
Quarter: 2013Q4

REPORT INFORMATION
  Report Type: Spontaneous
  Country: JP (occurrence: JP)
  Receive Date: 20131002
  Receipt Date: 20131011
  Transmission Date: 20140711
  Serious: Yes (Other)
  Sender: FDA-Public Use
  Company Number: JP-GLAXOSMITHKLINE-B0925835A

PATIENT
  Age: 7 Decade
  Sex: Male
  Weight: 53 kg

DRUGS (3)
  1. HEPSERA 10 [Suspect]
     Indication: CHRONIC HEPATITIS B
     Route: 048
     Dates: start: 2005
  2. ZEFIX 100 [Suspect]
     Indication: CHRONIC HEPATITIS B
     Route: 048
  3. JANUVIA [Concomitant]
     Indication: DIABETES MELLITUS
     Route: 048
     Dates: start: 2011

REACTIONS (11)
  - Fanconi syndrome [Unknown]
  - IgA nephropathy [Unknown]
  - Renal tubular disorder [Unknown]
  - Glomerular vascular disorder [Unknown]
  - Hypophosphataemia [Not Recovered/Not Resolved]
  - Diabetes mellitus [Unknown]
  - Renal impairment [Unknown]
  - Blood urine present [Unknown]
  - Proteinuria [Unknown]
  - Renal atrophy [Unknown]
  - Drug resistance [Unknown]
